FAERS Safety Report 6400782-3 (Version None)
Quarter: 2009Q4

REPORT INFORMATION
  Report Type: 
  Country: None (occurrence: None)
  Receive Date: 20091008
  Receipt Date: 20091005
  Transmission Date: 20100525
  Serious: Yes (Death, Hospitalization)
  Sender: FDA-Public Use
  Company Number: 395071

PATIENT
  Age: 53 Year
  Sex: Female

DRUGS (4)
  1. CYTARABINE [Suspect]
     Dates: start: 20090405, end: 20090711
  2. CISPLATIN [Suspect]
     Indication: LYMPHOMA
     Dosage: INTRAVENOUS
     Route: 042
     Dates: start: 20090404, end: 20090710
  3. DEXAMETHASONE [Concomitant]
  4. (RITUXIMAB) [Concomitant]

REACTIONS (6)
  - APHASIA [None]
  - ATAXIA [None]
  - CACHEXIA [None]
  - CARDIOPULMONARY FAILURE [None]
  - NEPHROPATHY TOXIC [None]
  - NEUROTOXICITY [None]
